FAERS Safety Report 9240335 (Version 2)
Quarter: 2013Q2

REPORT INFORMATION
  Report Type: Spontaneous
  Country: US (occurrence: None)
  Receive Date: 20130417
  Receipt Date: 20130501
  Transmission Date: 20140414
  Serious: Yes (Hospitalization, Other)
  Sender: FDA-Public Use
  Company Number: JPI-P-031024

PATIENT
  Age: 14 Year
  Sex: Female

DRUGS (4)
  1. XYREM (500 MILLIGRAM/ MILLILITERS, SOLUTION) (SODIUM OXYBATE) [Suspect]
     Indication: NARCOLEPSY
     Dosage: (4.5 GM, 2 IN 1 D)
     Route: 048
     Dates: start: 20121129
  2. FLUOXETINE HYDROCHLORIDE [Concomitant]
  3. CONCERTA [Concomitant]
  4. MODAFINIL [Concomitant]

REACTIONS (6)
  - Sleep attacks [None]
  - Depression [None]
  - Disturbance in attention [None]
  - Hypoaesthesia [None]
  - Mydriasis [None]
  - Staring [None]
